FAERS Safety Report 10076734 (Version 1)
Quarter: 2014Q2

REPORT INFORMATION
  Report Type: Spontaneous
  Country: FI (occurrence: FI)
  Receive Date: 20140414
  Receipt Date: 20140414
  Transmission Date: 20141212
  Serious: Yes (Death, Life-Threatening, Hospitalization)
  Sender: FDA-Public Use
  Company Number: FI-B.I. PHARMACEUTICALS,INC./RIDGEFIELD-2014-BI-16608SF

PATIENT
  Age: 77 Year
  Sex: Male

DRUGS (5)
  1. PRADAXA [Suspect]
     Indication: THROMBOSIS PROPHYLAXIS
     Dosage: 220 MG
     Route: 048
     Dates: start: 20121101
  2. PRADAXA [Suspect]
     Indication: ATRIAL FIBRILLATION
  3. LASIX RETARD [Concomitant]
     Dosage: 30 MG
     Route: 048
  4. BISOPROLOL ACTAVIS [Concomitant]
     Dosage: 10 MG
     Route: 048
  5. ALLONOL [Concomitant]
     Dosage: 100 MG
     Route: 048

REACTIONS (4)
  - Condition aggravated [Fatal]
  - Arterial thrombosis [Fatal]
  - General physical health deterioration [Not Recovered/Not Resolved]
  - Fall [Not Recovered/Not Resolved]
